FAERS Safety Report 16792942 (Version 1)
Quarter: 2019Q3

REPORT INFORMATION
  Report Type: Spontaneous
  Country: DE (occurrence: DE)
  Receive Date: 20190910
  Receipt Date: 20190910
  Transmission Date: 20191005
  Serious: Yes (Other)
  Sender: FDA-Public Use
  Company Number: DE-BIOGEN-2019BI00782489

PATIENT
  Age: 61 Year
  Sex: Male

DRUGS (3)
  1. FAMPYRA [Suspect]
     Active Substance: DALFAMPRIDINE
     Indication: MUSCLE SPASTICITY
     Route: 065
  2. TRIAMCINOLON [Concomitant]
     Indication: PRODUCT USED FOR UNKNOWN INDICATION
     Dosage: LAST TREATMENT WAS 3 MONTHS BEFORE FIRST ADMINISTRATION OF OCRELIZUMAB.
     Route: 037
  3. OCRELIZUMAB. [Suspect]
     Active Substance: OCRELIZUMAB
     Indication: PRODUCT USED FOR UNKNOWN INDICATION
     Dosage: INITIAL DOSE OF 300 MG, AND A SECOND DOSE OF 300 MG AT THE END OF THE MONTH
     Route: 065
     Dates: start: 201809

REACTIONS (1)
  - Herpes simplex encephalitis [Recovered/Resolved]
